FAERS Safety Report 9732888 (Version 1)
Quarter: 2013Q4

REPORT INFORMATION
  Report Type: Spontaneous
  Country: US (occurrence: US)
  Receive Date: 20131204
  Receipt Date: 20131204
  Transmission Date: 20140711
  Serious: No
  Sender: FDA-Public Use
  Company Number: US-GILEAD-2009-0022036

PATIENT
  Sex: Female
  Weight: 72.57 kg

DRUGS (15)
  1. LETAIRIS [Suspect]
     Indication: PULMONARY ARTERIAL HYPERTENSION
     Route: 048
     Dates: start: 20080924
  2. SPIRONOLACTONE [Concomitant]
  3. TORSEMIDE [Concomitant]
  4. LOVENOX [Concomitant]
  5. LASIX [Concomitant]
  6. SPIRIVA [Concomitant]
  7. SYMBICORT [Concomitant]
  8. OXYGEN [Concomitant]
  9. ADVAIR 500-50 DISKUS [Concomitant]
  10. OPANA [Concomitant]
  11. OXYCONTIN [Concomitant]
  12. CELEBREX [Concomitant]
  13. DILAUDID [Concomitant]
  14. LEVOTHROID [Concomitant]
  15. KLOR-CON [Concomitant]

REACTIONS (2)
  - Oedema [Unknown]
  - Fluid retention [Unknown]
